FAERS Safety Report 7432750-7 (Version None)
Quarter: 2011Q2

REPORT INFORMATION
  Report Type: 
  Country: None (occurrence: None)
  Receive Date: 20110422
  Receipt Date: 20110419
  Transmission Date: 20111010
  Serious: Yes (Congenital Anomaly)
  Sender: FDA-Public Use
  Company Number: A0923804A

PATIENT
  Sex: Female

DRUGS (1)
  1. PAXIL [Suspect]
     Dosage: 12.5MG UNKNOWN
     Route: 048

REACTIONS (6)
  - MITRAL VALVE INCOMPETENCE [None]
  - ATRIAL SEPTAL DEFECT [None]
  - DRUG EXPOSURE DURING PREGNANCY [None]
  - BICUSPID AORTIC VALVE [None]
  - CONGENITAL MITRAL VALVE STENOSIS [None]
  - AORTIC VALVE STENOSIS [None]
